FAERS Safety Report 7457082-2 (Version None)
Quarter: 2011Q2

REPORT INFORMATION
  Report Type: 
  Country: None (occurrence: None)
  Receive Date: 20110504
  Receipt Date: 20110419
  Transmission Date: 20111010
  Serious: Yes (Other)
  Sender: FDA-Public Use
  Company Number: US-JNJFOC-20110409587

PATIENT
  Sex: Female

DRUGS (9)
  1. DURAGESIC [Suspect]
     Indication: PAIN
     Route: 062
  2. ONDANSETRON [Concomitant]
     Indication: PANCREATITIS
     Route: 048
  3. PERCOCET [Concomitant]
     Indication: BREAKTHROUGH PAIN
     Route: 048
  4. FENTANYL-100 [Suspect]
     Indication: PAIN
     Route: 062
  5. DURAGESIC [Suspect]
     Route: 062
  6. GABAPENTIN [Suspect]
     Indication: HEADACHE
     Route: 065
  7. RISPERIDONE [Suspect]
     Indication: DEPRESSION
     Route: 048
  8. ATENOLOL [Concomitant]
     Indication: HYPERTENSION
     Route: 048
  9. NEXIUM [Concomitant]
     Indication: DYSPEPSIA
     Route: 048

REACTIONS (12)
  - DEPRESSION [None]
  - HEADACHE [None]
  - BEDRIDDEN [None]
  - THYROID DISORDER [None]
  - APPLICATION SITE RASH [None]
  - WEIGHT INCREASED [None]
  - OESOPHAGEAL PAIN [None]
  - DYSPEPSIA [None]
  - INTERVERTEBRAL DISC DISORDER [None]
  - ARTHROPATHY [None]
  - JOINT CREPITATION [None]
  - CONFUSIONAL STATE [None]
